FAERS Safety Report 5574022-1 (Version None)
Quarter: 2007Q4

REPORT INFORMATION
  Report Type: 
  Country: None (occurrence: None)
  Receive Date: 20071221
  Receipt Date: 20071209
  Transmission Date: 20080405
  Serious: Yes (Other)
  Sender: FDA-Public Use
  Company Number: 2007S1013244

PATIENT
  Age: 17 Year
  Sex: Male

DRUGS (3)
  1. CISPLATIN [Suspect]
     Indication: TESTICULAR GERM CELL CANCER
     Dosage: 30 MG;DAILY
  2. ETOPOSIDE [Suspect]
     Indication: TESTICULAR GERM CELL CANCER
     Dosage: 180 MG;DAILY
  3. BLEOMYCIN [Suspect]
     Indication: TESTICULAR GERM CELL CANCER
     Dosage: 30 MG

REACTIONS (6)
  - CEREBROVASCULAR ACCIDENT [None]
  - FACIAL PALSY [None]
  - HAEMORRHAGIC INFARCTION [None]
  - HEMIPLEGIA [None]
  - MALIGNANT NEOPLASM PROGRESSION [None]
  - TESTIS CANCER [None]
